FAERS Safety Report 9397385 (Version 1)
Quarter: 2013Q3

REPORT INFORMATION
  Report Type: Spontaneous
  Country: US (occurrence: None)
  Receive Date: 20130711
  Receipt Date: 20130711
  Transmission Date: 20140515
  Serious: Yes (Other)
  Sender: FDA-Public Use
  Company Number: None

PATIENT
  Age: 37 Year
  Sex: Female
  Weight: 55.34 kg

DRUGS (2)
  1. LAMOTRIGINE [Suspect]
     Indication: BIPOLAR DISORDER
     Route: 048
     Dates: start: 20130618, end: 20130703
  2. ESTRODIAL [Concomitant]

REACTIONS (5)
  - Drug withdrawal syndrome [None]
  - Asthenia [None]
  - Fatigue [None]
  - Tremor [None]
  - Crying [None]
